FAERS Safety Report 13866968 (Version 1)
Quarter: 2017Q3

REPORT INFORMATION
  Report Type: Spontaneous
  Country: US (occurrence: None)
  Receive Date: 20170814
  Receipt Date: 20170814
  Transmission Date: 20171127
  Serious: No
  Sender: FDA-Public Use
  Company Number: None

PATIENT
  Age: 58 Year
  Sex: Male

DRUGS (1)
  1. HUMIRA [Suspect]
     Active Substance: ADALIMUMAB
     Indication: TINEA MANUUM
     Route: 058

REACTIONS (3)
  - Syringe issue [None]
  - Injection site haemorrhage [None]
  - Injection site swelling [None]

NARRATIVE: CASE EVENT DATE: 20170808
